FAERS Safety Report 5627420-1 (Version None)
Quarter: 2008Q1

REPORT INFORMATION
  Report Type: 
  Country: None (occurrence: None)
  Receive Date: 20080215
  Receipt Date: 20080207
  Transmission Date: 20080703
  Serious: Yes (Death, Other)
  Sender: FDA-Public Use
  Company Number: US-JNJFOC-20071003696

PATIENT
  Sex: Male

DRUGS (7)
  1. REMICADE [Suspect]
     Indication: COLITIS ULCERATIVE
     Route: 042
  2. HUMIRA [Suspect]
  3. HUMIRA [Suspect]
     Indication: COLITIS ULCERATIVE
  4. 6MP [Suspect]
  5. 6MP [Suspect]
     Indication: COLITIS ULCERATIVE
  6. ASACOL [Concomitant]
  7. ASACOL [Concomitant]

REACTIONS (1)
  - HEPATOSPLENIC T-CELL LYMPHOMA [None]
